FAERS Safety Report 15330590 (Version 1)
Quarter: 2018Q3

REPORT INFORMATION
  Report Type: Spontaneous
  Country: MX (occurrence: MX)
  Receive Date: 20180829
  Receipt Date: 20180829
  Transmission Date: 20181010
  Serious: Yes (Other)
  Sender: FDA-Public Use
  Company Number: MX-PFIZER INC-2018343764

PATIENT

DRUGS (4)
  1. AMPICILLIN SODIUM. [Suspect]
     Active Substance: AMPICILLIN SODIUM
     Route: 042
  2. BENZOCAINE. [Interacting]
     Active Substance: BENZOCAINE
     Indication: PROMOTION OF WOUND HEALING
     Route: 017
  3. PARACETAMOL [Interacting]
     Active Substance: ACETAMINOPHEN
     Route: 042
  4. AMIKACIN SULFATE. [Interacting]
     Active Substance: AMIKACIN SULFATE
     Route: 042

REACTIONS (2)
  - Methaemoglobinaemia [Unknown]
  - Drug interaction [Unknown]
